FAERS Safety Report 9361140 (Version 1)
Quarter: 2013Q2

REPORT INFORMATION
  Report Type: Spontaneous
  Country: AR (occurrence: AR)
  Receive Date: 20130621
  Receipt Date: 20130621
  Transmission Date: 20140414
  Serious: Yes (Other)
  Sender: FDA-Public Use
  Company Number: AR-ABBOTT-13P-007-1106420-00

PATIENT
  Age: 38 Year
  Sex: Male

DRUGS (1)
  1. HUMIRA [Suspect]
     Indication: PSORIASIS
     Dosage: ONE DOSE EVERY 15 DAYS
     Dates: start: 201112

REACTIONS (3)
  - Cardiac disorder [Not Recovered/Not Resolved]
  - Stress [Unknown]
  - Cardiac disorder [Recovered/Resolved]
